FAERS Safety Report 18302975 (Version 1)
Quarter: 2020Q3

REPORT INFORMATION
  Report Type: Spontaneous
  Country: DE (occurrence: DE)
  Receive Date: 20200923
  Receipt Date: 20200923
  Transmission Date: 20201103
  Serious: Yes (Hospitalization)
  Sender: FDA-Public Use
  Company Number: DE-TEVA-2020-DE-1831409

PATIENT
  Age: 86 Year
  Sex: Male

DRUGS (5)
  1. SIMVASTATIN. [Concomitant]
     Active Substance: SIMVASTATIN
     Dosage: 40 MILLIGRAM DAILY; 0?0?1?0
     Route: 048
  2. PHENPROCOUMON [Concomitant]
     Active Substance: PHENPROCOUMON
     Dosage: 3 MG, BY VALUE
     Route: 048
  3. TAMSULOSIN [Suspect]
     Active Substance: TAMSULOSIN
     Dosage: .4 MILLIGRAM DAILY; 1?0?0?0
     Route: 048
  4. SPASMOLYT 30MG [Suspect]
     Active Substance: TROSPIUM CHLORIDE
     Dosage: .5 MILLIGRAM DAILY; 30 MG, 0.5?0?0?0
     Route: 048
  5. BISOPROLOL [Concomitant]
     Active Substance: BISOPROLOL
     Dosage: 2.5 MG, BREAK FROM 02?JUL?2020
     Route: 048

REACTIONS (6)
  - Pallor [Unknown]
  - Product prescribing error [Unknown]
  - Hypotension [Unknown]
  - General physical health deterioration [Unknown]
  - Palpitations [Unknown]
  - Dizziness [Unknown]
